FAERS Safety Report 4437492-8 (Version None)
Quarter: 2004Q3

REPORT INFORMATION
  Report Type: 
  Country: None (occurrence: None)
  Receive Date: 20040831
  Receipt Date: 20040819
  Transmission Date: 20050211
  Serious: Yes (Other)
  Sender: FDA-Public Use
  Company Number: US-JNJFOC-20040806757

PATIENT
  Sex: Female
  Weight: 58.06 kg

DRUGS (6)
  1. REMICADE [Suspect]
     Indication: CROHN'S DISEASE
     Route: 042
  2. AZASAN [Concomitant]
  3. XANAX [Concomitant]
  4. PREDNISONE [Concomitant]
  5. ULTRAM [Concomitant]
  6. PENTASA [Concomitant]
     Dosage: OFF FOR TWO YEARS.

REACTIONS (7)
  - APHONIA [None]
  - ARTHRALGIA [None]
  - HEADACHE [None]
  - HYPOAESTHESIA [None]
  - INFLUENZA LIKE ILLNESS [None]
  - OROPHARYNGEAL SWELLING [None]
  - PARAESTHESIA [None]
